FAERS Safety Report 18289436 (Version 1)
Quarter: 2020Q3

REPORT INFORMATION
  Report Type: Spontaneous
  Country: US (occurrence: US)
  Receive Date: 20200921
  Receipt Date: 20200921
  Transmission Date: 20201103
  Serious: No
  Sender: FDA-Public Use
  Company Number: US-MYLANLABS-2020M1076349

PATIENT
  Sex: Female
  Weight: 86 kg

DRUGS (1)
  1. LIDOCAINE PATCH [Suspect]
     Active Substance: LIDOCAINE
     Indication: BACK PAIN
     Dosage: DAILY, REMOVE AFTER 12 HOURS
     Route: 003

REACTIONS (3)
  - Product quality issue [Unknown]
  - Product adhesion issue [Unknown]
  - Off label use [Unknown]
